FAERS Safety Report 7650466-9 (Version None)
Quarter: 2011Q3

REPORT INFORMATION
  Report Type: 
  Country: None (occurrence: None)
  Receive Date: 20110802
  Receipt Date: 20110118
  Transmission Date: 20111222
  Serious: Yes (Hospitalization)
  Sender: FDA-Public Use
  Company Number: US-GLAXOSMITHKLINE-A0908186A

PATIENT
  Age: 57 Year
  Sex: Female

DRUGS (1)
  1. AVANDIA [Suspect]
     Indication: DIABETES MELLITUS
     Dosage: 8MG PER DAY
     Route: 048
     Dates: start: 20030114, end: 20050711

REACTIONS (6)
  - CHEST PAIN [None]
  - ARTERIAL BYPASS OPERATION [None]
  - CATHETERISATION CARDIAC [None]
  - CORONARY ARTERY BYPASS [None]
  - SWELLING [None]
  - MYOCARDIAL INFARCTION [None]
